FAERS Safety Report 14176409 (Version 2)
Quarter: 2018Q1

REPORT INFORMATION
  Report Type: Spontaneous
  Country: FR (occurrence: FR)
  Receive Date: 20171109
  Receipt Date: 20180219
  Transmission Date: 20180508
  Serious: Yes (Other)
  Sender: FDA-Public Use
  Company Number: FR-MERCK KGAA-2033740

PATIENT
  Age: 49 Year
  Sex: Female
  Weight: 95 kg

DRUGS (1)
  1. NOVOTHYROX [Suspect]
     Active Substance: LEVOTHYROXINE SODIUM
     Indication: AUTOIMMUNE THYROIDITIS
     Route: 048
     Dates: start: 2017, end: 20170823

REACTIONS (10)
  - Weight increased [Recovered/Resolved]
  - Fatigue [Recovered/Resolved]
  - Diffuse alopecia [Recovered/Resolved]
  - Myalgia [Recovered/Resolved]
  - Product formulation issue [Recovered/Resolved]
  - Balance disorder [Recovered/Resolved]
  - Blood thyroid stimulating hormone increased [Recovered/Resolved]
  - Insomnia [Recovered/Resolved]
  - Confusional state [Recovered/Resolved]
  - Depression [Recovered/Resolved]

NARRATIVE: CASE EVENT DATE: 2017
